FAERS Safety Report 9510585 (Version 4)
Quarter: 2013Q4

REPORT INFORMATION
  Report Type: Spontaneous
  Country: CH (occurrence: CH)
  Receive Date: 20130909
  Receipt Date: 20131021
  Transmission Date: 20140711
  Serious: Yes (Death, Hospitalization)
  Sender: FDA-Public Use
  Company Number: CH-B.I. PHARMACEUTICALS,INC./RIDGEFIELD-2013-BI-27631SI

PATIENT
  Age: 98 Year
  Sex: Female
  Weight: 82 kg

DRUGS (10)
  1. PRADAXA [Suspect]
     Indication: DEEP VEIN THROMBOSIS
     Dosage: 220 MG
     Route: 048
     Dates: start: 20120922, end: 20120926
  2. PRADAXA [Suspect]
     Indication: FIBRIN D DIMER INCREASED
  3. NEXIUM 20 MG MUPS [Concomitant]
     Indication: HAEMORRHAGE
     Dosage: 40 MCG
  4. TOREM [Concomitant]
     Indication: OEDEMA PERIPHERAL
  5. CALCIMAGON  D3 [Concomitant]
     Indication: OSTEOPOROSIS
  6. LACRINORM AUGENGEL [Concomitant]
  7. VITAMIN A BLACHE 5G AUGENSALBE [Concomitant]
     Dosage: 15 G
  8. SERETIDE [Concomitant]
     Dosage: 259+50 MCG
  9. VENTOLIN [Concomitant]
     Dosage: 7.5 MG
  10. DAFALGAN [Concomitant]

REACTIONS (9)
  - Death [Fatal]
  - Melaena [Recovered/Resolved]
  - Dizziness [Unknown]
  - Fall [Unknown]
  - Skin wound [Unknown]
  - Skin wound [Unknown]
  - Hypotonia [Unknown]
  - Tachycardia [Unknown]
  - Renal impairment [Unknown]
